FAERS Safety Report 7409706-3 (Version None)
Quarter: 2011Q2

REPORT INFORMATION
  Report Type: 
  Country: None (occurrence: None)
  Receive Date: 20110412
  Receipt Date: 20110404
  Transmission Date: 20111010
  Serious: Yes (Other)
  Sender: FDA-Public Use
  Company Number: US-BAXTER-2011BH008924

PATIENT
  Age: 48 Year
  Sex: Male

DRUGS (1)
  1. GAMMAGARD LIQUID [Suspect]
     Indication: PRODUCT USED FOR UNKNOWN INDICATION
     Route: 042
     Dates: start: 20110324, end: 20110324

REACTIONS (2)
  - RESPIRATORY DISORDER [None]
  - BACTERIAL INFECTION [None]
